FAERS Safety Report 5645294-X (Version None)
Quarter: 2008Q1

REPORT INFORMATION
  Report Type: 
  Country: None (occurrence: None)
  Receive Date: 20080229
  Receipt Date: 20080220
  Transmission Date: 20080703
  Serious: Yes (Disabling)
  Sender: FDA-Public Use
  Company Number: US-ROCHE-535396

PATIENT
  Age: 45 Year
  Sex: Female
  Weight: 98.4 kg

DRUGS (2)
  1. XELODA [Suspect]
     Dosage: DOSAGE RECEIVED AS 2 DOSE FORMS IN MORNING AND 3 DOSE FORMS IN EVENING.
     Route: 048
     Dates: start: 20071017, end: 20071031
  2. FLUOROURACIL [Suspect]
     Route: 042
     Dates: start: 20071112, end: 20071113

REACTIONS (2)
  - ANXIETY DISORDER [None]
  - NEUROTOXICITY [None]
